FAERS Safety Report 6015551-6 (Version None)
Quarter: 2008Q4

REPORT INFORMATION
  Report Type: 
  Country: None (occurrence: None)
  Receive Date: 20081219
  Receipt Date: 20081219
  Transmission Date: 20090506
  Serious: Yes (Hospitalization)
  Sender: FDA-Public Use
  Company Number: None

PATIENT
  Sex: Female
  Weight: 32.2 kg

DRUGS (8)
  1. NUTROPIN AQ [Suspect]
     Indication: BODY HEIGHT BELOW NORMAL
     Dosage: 1.6 Q HS 057
     Dates: start: 20070625
  2. NUTROPIN AQ [Suspect]
     Indication: OSTEOGENESIS IMPERFECTA
     Dosage: 1.6 Q HS 057
     Dates: start: 20070625
  3. PREVACID [Concomitant]
  4. SINGULAIR [Concomitant]
  5. MIRALAX [Concomitant]
  6. CLARITIN [Concomitant]
  7. M.V.I. [Concomitant]
  8. ZOMETA [Concomitant]

REACTIONS (8)
  - CRANIAL NERVE DISORDER [None]
  - DYSPHAGIA [None]
  - HEADACHE [None]
  - NERVE COMPRESSION [None]
  - ORTHOSIS USER [None]
  - PARAESTHESIA ORAL [None]
  - PLATYBASIA [None]
  - TONGUE DISORDER [None]
